FAERS Safety Report 21720689 (Version 1)
Quarter: 2022Q4

REPORT INFORMATION
  Report Type: Spontaneous
  Country: None (occurrence: NO)
  Receive Date: 20221213
  Receipt Date: 20221213
  Transmission Date: 20230113
  Serious: Yes (Other)
  Sender: FDA-Public Use
  Company Number: NO-Therakind Limited-2135816

PATIENT
  Age: 59 Year
  Sex: Male

DRUGS (22)
  1. METHOTREXATE [Suspect]
     Active Substance: METHOTREXATE
     Indication: Diffuse large B-cell lymphoma
     Dates: start: 20220113, end: 20220518
  2. BENDAMUSTINE [Suspect]
     Active Substance: BENDAMUSTINE
     Dates: start: 20221026, end: 20221026
  3. DEXAMETHASONE [Suspect]
     Active Substance: DEXAMETHASONE
     Dates: start: 20221005, end: 20221005
  4. OXYCODONE HYDROCHLORIDE [Concomitant]
     Active Substance: OXYCODONE HYDROCHLORIDE
  5. POLATUZUMAB VEDOTIN [Suspect]
     Active Substance: POLATUZUMAB VEDOTIN
     Dates: start: 20221026, end: 20221026
  6. CYCLOPHOSPHAMIDE [Suspect]
     Active Substance: CYCLOPHOSPHAMIDE
     Dates: start: 20220113, end: 20220518
  7. SODIUM PICOSULFATE [Concomitant]
     Active Substance: SODIUM PICOSULFATE
  8. ACETAMINOPHEN [Concomitant]
     Active Substance: ACETAMINOPHEN
  9. VINCRISTINE [Suspect]
     Active Substance: VINCRISTINE
     Dates: start: 20220113, end: 20220518
  10. TAMSULOSIN HYDROCHLORIDE [Concomitant]
     Active Substance: TAMSULOSIN HYDROCHLORIDE
  11. DOXORUBICIN HYDROCHLORIDE [Suspect]
     Active Substance: DOXORUBICIN HYDROCHLORIDE
     Dates: start: 20220113, end: 20220518
  12. CYTARABINE [Suspect]
     Active Substance: CYTARABINE
     Dates: start: 20221005, end: 20221005
  13. MACROGOL 3350?POTASSIUM CHLORIDE?SODIUM BICARBONATE?SODIUM CHLORIDE [Concomitant]
  14. PREDNISONE [Suspect]
     Active Substance: PREDNISONE
     Dates: start: 20220113, end: 20220518
  15. CISPLATIN [Suspect]
     Active Substance: CISPLATIN
     Dates: start: 20221005, end: 20221005
  16. BACTRIM [Concomitant]
     Active Substance: SULFAMETHOXAZOLE\TRIMETHOPRIM
  17. RITUXIMAB [Suspect]
     Active Substance: RITUXIMAB
     Dates: start: 20220113, end: 20220518
  18. OXYCONTIN [Concomitant]
     Active Substance: OXYCODONE HYDROCHLORIDE
  19. ETOPOSIDE [Suspect]
     Active Substance: ETOPOSIDE
     Dates: start: 20220113, end: 20220518
  20. METOCLOPRAMIDE HYDROCHLORIDE [Concomitant]
     Active Substance: METOCLOPRAMIDE HYDROCHLORIDE
  21. ONDANSETRON [Concomitant]
     Active Substance: ONDANSETRON
  22. OBINUTUZUMAB [Suspect]
     Active Substance: OBINUTUZUMAB

REACTIONS (8)
  - Pain [Unknown]
  - Blood lactate dehydrogenase increased [Unknown]
  - Neoplasm [Unknown]
  - Abdominal neoplasm [Unknown]
  - Abdominal pain [Unknown]
  - Off label use [Unknown]
  - Disease progression [Unknown]
  - Product use in unapproved indication [Unknown]
